FAERS Safety Report 16378744 (Version 7)
Quarter: 2024Q1

REPORT INFORMATION
  Report Type: Report from Study
  Country: JP (occurrence: JP)
  Receive Date: 20190531
  Receipt Date: 20240118
  Transmission Date: 20240410
  Serious: Yes (Other)
  Sender: FDA-Public Use
  Company Number: JP-JNJJAKJPN-201926940

PATIENT
  Age: 27 Year
  Sex: Male
  Weight: 57 kg

DRUGS (18)
  1. SIRTURO [Suspect]
     Active Substance: BEDAQUILINE FUMARATE
     Indication: Pulmonary tuberculosis
     Route: 048
     Dates: start: 20180822, end: 20180904
  2. SIRTURO [Suspect]
     Active Substance: BEDAQUILINE FUMARATE
     Route: 048
     Dates: start: 20180905, end: 20181206
  3. SIRTURO [Suspect]
     Active Substance: BEDAQUILINE FUMARATE
     Route: 048
     Dates: start: 20181212, end: 20190830
  4. SIRTURO [Suspect]
     Active Substance: BEDAQUILINE FUMARATE
     Route: 048
     Dates: start: 20190912, end: 20200109
  5. CYCLOSERINE [Suspect]
     Active Substance: CYCLOSERINE
     Indication: Pulmonary tuberculosis
     Route: 048
     Dates: start: 20180402, end: 20181016
  6. LEVOFLOXACIN [Suspect]
     Active Substance: LEVOFLOXACIN
     Indication: Pulmonary tuberculosis
     Route: 048
     Dates: start: 20180530
  7. LEVOFLOXACIN [Suspect]
     Active Substance: LEVOFLOXACIN
     Route: 048
     Dates: start: 20190912, end: 20200109
  8. LINEZOLID [Suspect]
     Active Substance: LINEZOLID
     Indication: Pulmonary tuberculosis
     Route: 048
     Dates: start: 20180402
  9. LINEZOLID [Suspect]
     Active Substance: LINEZOLID
     Route: 048
     Dates: start: 20190912, end: 20200109
  10. AMINOSALICYLATE CALCIUM ALUMINIUM [Suspect]
     Active Substance: AMINOSALICYLATE CALCIUM ALUMINIUM
     Indication: Pulmonary tuberculosis
     Dosage: TOTAL DAILY DOSE: 11G
     Route: 048
  11. AMINOSALICYLATE CALCIUM ALUMINIUM [Suspect]
     Active Substance: AMINOSALICYLATE CALCIUM ALUMINIUM
     Route: 048
     Dates: start: 20180530
  12. AMINOSALICYLATE CALCIUM ALUMINIUM [Suspect]
     Active Substance: AMINOSALICYLATE CALCIUM ALUMINIUM
     Dosage: TOTAL DAILY DOSE: 11G
     Route: 048
     Dates: start: 20190912, end: 20200109
  13. KANAMYCIN SULFATE [Concomitant]
     Active Substance: KANAMYCIN SULFATE
     Indication: Pulmonary tuberculosis
     Route: 065
     Dates: start: 20180402
  14. MAGNESIUM OXIDE [Concomitant]
     Active Substance: MAGNESIUM OXIDE
     Indication: Constipation
     Route: 048
     Dates: start: 20181212, end: 20190108
  15. REBAMIPIDE [Concomitant]
     Active Substance: REBAMIPIDE
     Indication: Nausea
     Route: 048
     Dates: start: 20181227
  16. LOXOPROFEN SODIUM [Concomitant]
     Active Substance: LOXOPROFEN SODIUM
     Indication: Chest pain
     Route: 048
     Dates: start: 20181212
  17. CODEINE PHOSPHATE [Concomitant]
     Active Substance: CODEINE PHOSPHATE
     Indication: Cough
     Route: 048
     Dates: start: 20181212
  18. MOSAPRIDE CITRATE [Concomitant]
     Active Substance: MOSAPRIDE CITRATE
     Indication: Decreased appetite
     Route: 048
     Dates: start: 20190524

REACTIONS (6)
  - Delirium [Recovered/Resolved]
  - Constipation [Recovered/Resolved]
  - Nausea [Not Recovered/Not Resolved]
  - Chest pain [Not Recovered/Not Resolved]
  - Cough [Not Recovered/Not Resolved]
  - Decreased appetite [Not Recovered/Not Resolved]

NARRATIVE: CASE EVENT DATE: 20181013
